FAERS Safety Report 4774986-X (Version None)
Quarter: 2005Q3

REPORT INFORMATION
  Report Type: 
  Country: None (occurrence: None)
  Receive Date: 20050920
  Receipt Date: 20050908
  Transmission Date: 20060218
  Serious: Yes (Hospitalization, Other)
  Sender: FDA-Public Use
  Company Number: 2005120811

PATIENT
  Age: 60 Year
  Sex: Male
  Weight: 76 kg

DRUGS (1)
  1. LYRICA [Suspect]
     Indication: GRAND MAL CONVULSION
     Dosage: 225 MG (ORAL)
     Route: 048
     Dates: start: 20050201, end: 20050814

REACTIONS (7)
  - ARTHRALGIA [None]
  - ARTHRITIS [None]
  - DEEP VEIN THROMBOSIS [None]
  - HYPONATRAEMIA [None]
  - INFLAMMATION [None]
  - PAIN IN EXTREMITY [None]
  - URINARY TRACT INFECTION [None]
